FAERS Safety Report 18739262 (Version 4)
Quarter: 2021Q1

REPORT INFORMATION
  Report Type: Spontaneous
  Country: US (occurrence: US)
  Receive Date: 20210114
  Receipt Date: 20210222
  Transmission Date: 20210419
  Serious: Yes (Other)
  Sender: FDA-Public Use
  Company Number: US-AMGEN-USASP2021004394

PATIENT
  Sex: Female

DRUGS (1)
  1. PROLIA [Suspect]
     Active Substance: DENOSUMAB
     Indication: OSTEOPOROSIS
     Dosage: 60 MILLIGRAM, Q6MO
     Route: 065
     Dates: start: 202008

REACTIONS (5)
  - Skin irritation [Recovering/Resolving]
  - White blood cell count decreased [Unknown]
  - Endometrial cancer recurrent [Not Recovered/Not Resolved]
  - Neutrophil count decreased [Recovering/Resolving]
  - Surgery [Unknown]
